FAERS Safety Report 16248928 (Version 1)
Quarter: 2019Q2

REPORT INFORMATION
  Report Type: Spontaneous
  Country: ES (occurrence: ES)
  Receive Date: 20190429
  Receipt Date: 20190429
  Transmission Date: 20190711
  Serious: Yes (Other)
  Sender: FDA-Public Use
  Company Number: ES-ACCORD-124551

PATIENT
  Age: 83 Year
  Sex: Male

DRUGS (3)
  1. OMNIC GELS [Concomitant]
     Dosage: STRENGTH 0.4 MG, FILM-COATED PROLONGED RELEASE TABLETS
  2. MITOMYCIN. [Suspect]
     Active Substance: MITOMYCIN
     Indication: BLADDER NEOPLASM
     Dosage: STRENGTH 40 MG,CYCLE 15
     Route: 043
     Dates: start: 20170821, end: 20181030
  3. HEMOVAS [Concomitant]
     Dosage: STRENGTH 600 MG,PROLONGED RELEASE COATED TABLETS

REACTIONS (3)
  - Off label use [Unknown]
  - Haematuria [Recovered/Resolved]
  - Proteinuria [Recovered/Resolved]

NARRATIVE: CASE EVENT DATE: 20181106
